FAERS Safety Report 8813481 (Version 1)
Quarter: 2012Q4

REPORT INFORMATION
  Report Type: 
  Country: US (occurrence: US)
  Receive Date: 20120927
  Receipt Date: 20120927
  Transmission Date: 20130627
  Serious: No
  Sender: FDA-Public Use
  Company Number: US-AMGEN-USASP2011026123

PATIENT
  Age: 78 Year
  Sex: Female

DRUGS (4)
  1. PROLIA [Suspect]
     Indication: OSTEOPOROSIS POSTMENOPAUSAL
     Dosage: 60 mg, q6mo
     Route: 058
  2. VITAMIN D /00107901/ [Concomitant]
  3. VITAMIN E                          /00110501/ [Concomitant]
  4. CALCIUM [Concomitant]

REACTIONS (1)
  - Tooth fracture [Not Recovered/Not Resolved]
